FAERS Safety Report 5053781-0 (Version None)
Quarter: 2006Q3

REPORT INFORMATION
  Report Type: 
  Country: None (occurrence: None)
  Receive Date: 20060712
  Receipt Date: 20060629
  Transmission Date: 20061208
  Serious: Yes (Other)
  Sender: FDA-Public Use
  Company Number: 2006082232

PATIENT
  Sex: Female

DRUGS (1)
  1. MEDROXYPROGESTERONE ACETATE [Suspect]
     Indication: CONTRACEPTION
     Dosage: INTRAMUSCULAR
     Route: 030

REACTIONS (5)
  - BLOOD PRESSURE INCREASED [None]
  - DYSPNOEA [None]
  - MUSCLE SPASMS [None]
  - TACHYCARDIA [None]
  - TREATMENT NONCOMPLIANCE [None]
